FAERS Safety Report 6094511-3 (Version None)
Quarter: 2009Q1

REPORT INFORMATION
  Report Type: 
  Country: None (occurrence: None)
  Receive Date: 20090226
  Receipt Date: 20090218
  Transmission Date: 20090719
  Serious: Yes (Death, Other)
  Sender: FDA-Public Use
  Company Number: US-BAXTER-2009BH002696

PATIENT
  Sex: Male

DRUGS (1)
  1. HEPARIN SODIUM INJECTION [Suspect]
     Indication: DRUG USE FOR UNKNOWN INDICATION
     Route: 065
     Dates: start: 20080213

REACTIONS (5)
  - BLOOD PRESSURE DECREASED [None]
  - DEATH [None]
  - PLATELET COUNT DECREASED [None]
  - RESPIRATORY DISTRESS [None]
  - TACHYCARDIA [None]
